FAERS Safety Report 16008571 (Version 1)
Quarter: 2019Q1

REPORT INFORMATION
  Report Type: Spontaneous
  Country: US (occurrence: US)
  Receive Date: 20190226
  Receipt Date: 20190226
  Transmission Date: 20190418
  Serious: No
  Sender: FDA-Public Use
  Company Number: US-AMAG PHARMACEUTICALS, INC.-AMAG201900006

PATIENT
  Age: 47 Year
  Sex: Female
  Weight: 65.76 kg

DRUGS (1)
  1. INTRAROSA [Suspect]
     Active Substance: PRASTERONE
     Indication: BLADDER PROLAPSE
     Dosage: 6.5 MG, QHS
     Route: 067
     Dates: start: 20181229, end: 20181229

REACTIONS (4)
  - Muscle spasms [Recovered/Resolved]
  - Inflammation [Recovered/Resolved]
  - Swelling [Recovered/Resolved]
  - Off label use [Unknown]

NARRATIVE: CASE EVENT DATE: 20181229
